FAERS Safety Report 4945612-1 (Version None)
Quarter: 2006Q1

REPORT INFORMATION
  Report Type: 
  Country: None (occurrence: None)
  Receive Date: 20060316
  Receipt Date: 20051230
  Transmission Date: 20060701
  Serious: Yes (Hospitalization)
  Sender: FDA-Public Use
  Company Number: FR-MERCK-0601FRA00001

PATIENT
  Age: 87 Year
  Sex: Female

DRUGS (6)
  1. FOSAMAX [Suspect]
     Indication: OSTEOPOROSIS
     Route: 048
     Dates: end: 20051120
  2. MEBEVERINE HYDROCHLORIDE [Concomitant]
     Route: 048
     Dates: end: 20051120
  3. TROXERUTIN AND MELILOT [Concomitant]
     Route: 048
     Dates: end: 20051120
  4. PHLOROGLUCINOL AND TRIMETHYLPHLOROGLUCINOL [Concomitant]
     Route: 048
     Dates: end: 20051120
  5. FUROSEMIDE [Concomitant]
     Route: 048
  6. NITROGLYCERIN [Concomitant]
     Route: 061

REACTIONS (2)
  - GASTRITIS EROSIVE [None]
  - MICROCYTIC ANAEMIA [None]
